FAERS Safety Report 18554587 (Version 1)
Quarter: 2020Q4

REPORT INFORMATION
  Report Type: Spontaneous
  Country: US (occurrence: US)
  Receive Date: 20201127
  Receipt Date: 20201127
  Transmission Date: 20210114
  Serious: Yes (Other)
  Sender: FDA-Public Use
  Company Number: US-009507513-2011USA015323

PATIENT
  Age: 57 Year
  Sex: Female
  Weight: 58.5 kg

DRUGS (13)
  1. PRINIVIL [Suspect]
     Active Substance: LISINOPRIL
     Indication: HYPERTENSION
     Dosage: 20 MILLIGRAM, QD
     Route: 048
     Dates: start: 2004
  2. ZOFRAN [Concomitant]
     Active Substance: ONDANSETRON HYDROCHLORIDE
     Indication: NAUSEA
  3. NEXIUM [Suspect]
     Active Substance: ESOMEPRAZOLE MAGNESIUM
     Indication: DYSPEPSIA
     Dosage: 80 MILLIGRAM, QD
     Route: 048
     Dates: start: 20090301
  4. PRILOSEC [Suspect]
     Active Substance: OMEPRAZOLE MAGNESIUM
     Dosage: UNK
     Route: 048
     Dates: start: 2008
  5. NEXIUM [Suspect]
     Active Substance: ESOMEPRAZOLE MAGNESIUM
     Indication: HIATUS HERNIA
  6. COPAXONE [Concomitant]
     Active Substance: GLATIRAMER ACETATE
     Indication: MULTIPLE SCLEROSIS
  7. THIAZID COMP [Concomitant]
  8. XANAX [Concomitant]
     Active Substance: ALPRAZOLAM
  9. NEXIUM [Suspect]
     Active Substance: ESOMEPRAZOLE MAGNESIUM
     Indication: GASTROOESOPHAGEAL REFLUX DISEASE
  10. NEXIUM [Suspect]
     Active Substance: ESOMEPRAZOLE MAGNESIUM
     Indication: IMPAIRED GASTRIC EMPTYING
  11. ADVAIR HFA [Concomitant]
     Active Substance: FLUTICASONE PROPIONATE\SALMETEROL XINAFOATE
  12. PROAIR HFA [Concomitant]
     Active Substance: ALBUTEROL SULFATE
  13. ZANTAC [Concomitant]
     Active Substance: RANITIDINE HYDROCHLORIDE
     Dates: start: 2008

REACTIONS (18)
  - Feeding disorder [Unknown]
  - Hiatus hernia [Unknown]
  - Paraesthesia [Unknown]
  - Off label use [Unknown]
  - Impaired gastric emptying [Unknown]
  - Fall [Unknown]
  - Muscle spasms [Unknown]
  - Muscle spasticity [Unknown]
  - Nausea [Unknown]
  - Hypoaesthesia [Unknown]
  - Drug ineffective [Unknown]
  - Abdominal pain [Unknown]
  - Gastric disorder [Unknown]
  - Eructation [Unknown]
  - Multiple sclerosis [Unknown]
  - Vomiting [Unknown]
  - Pain in extremity [Unknown]
  - Dyspepsia [Unknown]
